FAERS Safety Report 5705764-2 (Version None)
Quarter: 2008Q2

REPORT INFORMATION
  Report Type: 
  Country: None (occurrence: None)
  Receive Date: 20080415
  Receipt Date: 20080409
  Transmission Date: 20081010
  Serious: Yes (Hospitalization)
  Sender: FDA-Public Use
  Company Number: CL-TEVA-168809ISR

PATIENT
  Age: 27 Year
  Sex: Female

DRUGS (1)
  1. FUROSEMIDE [Suspect]
     Dosage: 40-120 MG/DAY

REACTIONS (4)
  - DRUG ABUSE [None]
  - ELECTROCARDIOGRAM ABNORMAL [None]
  - HYPOKALAEMIA [None]
  - HYPOVOLAEMIA [None]
